FAERS Safety Report 9831530 (Version 2)
Quarter: 2014Q1

REPORT INFORMATION
  Report Type: Spontaneous
  Country: US (occurrence: US)
  Receive Date: 20140121
  Receipt Date: 20140121
  Transmission Date: 20141002
  Serious: Yes (Other)
  Sender: FDA-Public Use
  Company Number: US-GE HEALTHCARE MEDICAL DIAGNOSTICS-OSCN-PR-0806S-0392

PATIENT
  Age: 27 Year
  Sex: Female

DRUGS (8)
  1. OMNISCAN [Suspect]
     Indication: CONVULSION
     Dates: start: 20060222, end: 20060222
  2. OMNISCAN [Suspect]
     Indication: THROMBOSIS
     Dates: start: 20060906, end: 20060906
  3. OMNISCAN [Suspect]
     Indication: THROMBOSIS
     Dates: start: 20061016, end: 20061016
  4. OMNISCAN [Suspect]
     Indication: THROMBOSIS
     Dates: start: 20061025, end: 20061025
  5. OMNISCAN [Suspect]
     Indication: TRANSPLANT EVALUATION
     Dates: start: 20061108, end: 20061108
  6. OMNISCAN [Suspect]
     Indication: PRODUCT USED FOR UNKNOWN INDICATION
     Dates: start: 20061130, end: 20061130
  7. OMNISCAN [Suspect]
     Indication: PRODUCT USED FOR UNKNOWN INDICATION
     Dates: start: 20061216, end: 20061216
  8. OMNISCAN [Suspect]
     Indication: TRANSPLANT EVALUATION
     Dates: start: 20061217, end: 20061217

REACTIONS (1)
  - Nephrogenic systemic fibrosis [Not Recovered/Not Resolved]
